FAERS Safety Report 7708727-0 (Version None)
Quarter: 2011Q3

REPORT INFORMATION
  Report Type: 
  Country: None (occurrence: None)
  Receive Date: 20110825
  Receipt Date: 20110825
  Transmission Date: 20111222
  Serious: Yes (Life-Threatening, Hospitalization)
  Sender: FDA-Public Use
  Company Number: None

PATIENT
  Age: 53 Year
  Sex: Female

DRUGS (1)
  1. ERTAPENEM [Suspect]
     Indication: INFECTION
     Dosage: 0.5 GRAMS
     Route: 042
     Dates: start: 20110817, end: 20110818

REACTIONS (1)
  - CONVULSION [None]
